FAERS Safety Report 25805480 (Version 2)
Quarter: 2025Q4

REPORT INFORMATION
  Report Type: Report from Study
  Country: CA (occurrence: CA)
  Receive Date: 20250916
  Receipt Date: 20251110
  Transmission Date: 20260118
  Serious: Yes (Hospitalization, Other)
  Sender: ASTELLAS
  Company Number: CA-ASTELLAS-2025-AER-003870

PATIENT
  Age: 66 Year
  Sex: Male
  Weight: 81 kg

DRUGS (23)
  1. XTANDI [Suspect]
     Active Substance: ENZALUTAMIDE
     Indication: Product used for unknown indication
     Route: 065
     Dates: start: 202310, end: 20240116
  2. XTANDI [Suspect]
     Active Substance: ENZALUTAMIDE
     Route: 065
     Dates: start: 20240126, end: 202412
  3. XTANDI [Suspect]
     Active Substance: ENZALUTAMIDE
     Route: 065
     Dates: start: 202412
  4. ELIGARD [Suspect]
     Active Substance: LEUPROLIDE ACETATE
     Indication: Prostate cancer
     Dosage: PRE-FILLED SYRINGES (4-MONTH) -SINGLE DOSE?POWDER FOR SUSPENSION, SUSTAINED- RELEASE
     Route: 058
     Dates: start: 20230622
  5. ELIGARD [Suspect]
     Active Substance: LEUPROLIDE ACETATE
     Dosage: PRE-FILLED SYRINGES (4-MONTH) -SINGLE DOSE?POWDER FOR SUSPENSION, SUSTAINED- RELEASE
     Route: 058
     Dates: start: 20231012
  6. ELIGARD [Suspect]
     Active Substance: LEUPROLIDE ACETATE
     Dosage: PRE-FILLED SYRINGES (4-MONTH) -SINGLE DOSE?POWDER FOR SUSPENSION, SUSTAINED- RELEASE
     Route: 058
     Dates: start: 20240201
  7. ELIGARD [Suspect]
     Active Substance: LEUPROLIDE ACETATE
     Dosage: PRE-FILLED SYRINGES (4-MONTH) -SINGLE DOSE?POWDER FOR SUSPENSION, SUSTAINED- RELEASE
     Route: 058
     Dates: start: 20240522
  8. ELIGARD [Suspect]
     Active Substance: LEUPROLIDE ACETATE
     Dosage: PRE-FILLED SYRINGES (4-MONTH) -SINGLE DOSE?POWDER FOR SUSPENSION, SUSTAINED- RELEASE
     Route: 058
     Dates: start: 20240911
  9. ELIGARD [Suspect]
     Active Substance: LEUPROLIDE ACETATE
     Dosage: PRE-FILLED SYRINGES (4-MONTH) -SINGLE DOSE?POWDER FOR SUSPENSION, SUSTAINED- RELEASE
     Route: 058
     Dates: start: 20230303
  10. ELIGARD [Suspect]
     Active Substance: LEUPROLIDE ACETATE
     Dosage: PRE-FILLED SYRINGES (4-MONTH) -SINGLE DOSE?POWDER FOR SUSPENSION, SUSTAINED- RELEASE
     Route: 058
     Dates: start: 20250103
  11. ELIGARD [Suspect]
     Active Substance: LEUPROLIDE ACETATE
     Dosage: POWDER FOR SUSPENSION, SUSTAINED- RELEASE
     Route: 058
     Dates: start: 20250424
  12. ELIGARD [Suspect]
     Active Substance: LEUPROLIDE ACETATE
     Dosage: POWDER FOR SUSPENSION, SUSTAINED- RELEASE
     Route: 058
     Dates: start: 20250814
  13. TAMSULOSIN [Concomitant]
     Active Substance: TAMSULOSIN
     Indication: Urinary tract disorder
     Route: 065
  14. TAMSULOSIN [Concomitant]
     Active Substance: TAMSULOSIN
     Indication: Prostatomegaly
  15. ASPIRIN [Concomitant]
     Active Substance: ASPIRIN
     Indication: Product used for unknown indication
     Dosage: UNKNOWN DOSE AND FREQUENCY
     Route: 065
  16. ASPIRIN [Concomitant]
     Active Substance: ASPIRIN
     Dosage: UNKNOWN DOSE AND FREQUENCY
     Route: 065
  17. TEGRETOL [Concomitant]
     Active Substance: CARBAMAZEPINE
     Indication: Epilepsy
     Dosage: UNKNOWN DOSE AND FREQUENCY
     Route: 065
  18. LAMOTRIGINE [Concomitant]
     Active Substance: LAMOTRIGINE
     Indication: Product used for unknown indication
     Route: 065
  19. LAMOTRIGINE [Concomitant]
     Active Substance: LAMOTRIGINE
     Route: 065
  20. LEVETIRACETAM [Concomitant]
     Active Substance: LEVETIRACETAM
     Indication: Epilepsy
     Route: 065
  21. LEVETIRACETAM [Concomitant]
     Active Substance: LEVETIRACETAM
     Route: 065
  22. EMOLAX [Concomitant]
     Indication: Constipation
     Dosage: POWDER FOR SOLUTION
     Route: 048
  23. ROSUVASTATIN [Concomitant]
     Active Substance: ROSUVASTATIN
     Indication: Product used for unknown indication
     Dosage: ONCE EVERY OTHER DAY
     Route: 048

REACTIONS (28)
  - Injection site pain [Recovered/Resolved]
  - Hot flush [Not Recovered/Not Resolved]
  - Injection site pain [Recovered/Resolved]
  - Injection site mass [Not Recovered/Not Resolved]
  - Dysphagia [Recovering/Resolving]
  - Epilepsy [Unknown]
  - Gastrointestinal ulcer haemorrhage [Recovered/Resolved]
  - Decreased appetite [Recovering/Resolving]
  - Lymphadenitis [Unknown]
  - Abdominal fat apron [Unknown]
  - Constipation [Unknown]
  - Dysuria [Recovering/Resolving]
  - Fatigue [Unknown]
  - Gynaecomastia [Unknown]
  - Libido decreased [Unknown]
  - Nipple pain [Unknown]
  - Prostatomegaly [Unknown]
  - Radiation injury [Recovered/Resolved]
  - Anorectal disorder [Unknown]
  - Gastrointestinal disorder [Unknown]
  - Oesophageal stenosis [Unknown]
  - Taste disorder [Recovering/Resolving]
  - Transient ischaemic attack [Not Recovered/Not Resolved]
  - Weight decreased [Unknown]
  - Weight increased [Unknown]
  - Hypoaesthesia oral [Unknown]
  - Hypoaesthesia [Unknown]
  - Hypoaesthesia [Unknown]

NARRATIVE: CASE EVENT DATE: 20230103
